FAERS Safety Report 9537869 (Version 1)
Quarter: 2013Q3

REPORT INFORMATION
  Report Type: Report from Study
  Country: US (occurrence: US)
  Receive Date: 20130919
  Receipt Date: 20130919
  Transmission Date: 20140515
  Serious: Yes (Other)
  Sender: FDA-Public Use
  Company Number: US-ROCHE-1275174

PATIENT
  Sex: Female

DRUGS (10)
  1. AVASTIN [Suspect]
     Indication: DIABETIC RETINAL OEDEMA
     Route: 065
     Dates: start: 20130905
  2. AVASTIN [Suspect]
     Indication: OFF LABEL USE
  3. CITRACAL [Concomitant]
  4. LANTUS [Concomitant]
  5. LEVOTHYROXINE [Concomitant]
  6. LIPITOR [Concomitant]
  7. ALBUTEROL [Concomitant]
  8. HUMALOG [Concomitant]
  9. ASPIRIN [Concomitant]
  10. VITAMIN D3 [Concomitant]

REACTIONS (4)
  - Macular oedema [Not Recovered/Not Resolved]
  - Diabetic retinal oedema [Not Recovered/Not Resolved]
  - Retinal oedema [Not Recovered/Not Resolved]
  - Retinal detachment [Not Recovered/Not Resolved]
